FAERS Safety Report 12605183 (Version 1)
Quarter: 2016Q3

REPORT INFORMATION
  Report Type: Report from Study
  Country: US (occurrence: US)
  Receive Date: 20160729
  Receipt Date: 20160729
  Transmission Date: 20161109
  Serious: Yes (Life-Threatening, Hospitalization, Other)
  Sender: FDA-Public Use
  Company Number: US-ROCHE-1004074

PATIENT
  Age: 69 Year
  Sex: Male
  Weight: 76.7 kg

DRUGS (18)
  1. VISMODEGIB [Suspect]
     Active Substance: VISMODEGIB
     Route: 048
     Dates: start: 20110831
  2. VISMODEGIB [Suspect]
     Active Substance: VISMODEGIB
     Route: 048
     Dates: start: 20110831
  3. ETOPOSIDE. [Suspect]
     Active Substance: ETOPOSIDE
     Indication: SMALL CELL LUNG CANCER
     Dosage: OVER 2 HRS ON DAY 1-3?LAST DATE ADMINISTERED: 02/SEP/2011 AND 28-OCT-2011, DOSE DELAYED BY 7 DAYS
     Route: 042
     Dates: start: 20110810
  4. ATENOLOL. [Concomitant]
     Active Substance: ATENOLOL
     Dosage: QD
     Route: 048
  5. VENLAFAXINE [Concomitant]
     Active Substance: VENLAFAXINE HYDROCHLORIDE
     Dosage: QD
     Route: 048
  6. OMEPRAZON [Concomitant]
     Active Substance: OMEPRAZOLE
     Route: 048
  7. VISMODEGIB [Suspect]
     Active Substance: VISMODEGIB
     Indication: SMALL CELL LUNG CANCER
     Dosage: 21 DAYS CYCLE?LAST DOSE ADMINISTERED: 14/SEP/2011 AND 15-NOV-2011
     Route: 048
     Dates: start: 20110810
  8. VISMODEGIB [Suspect]
     Active Substance: VISMODEGIB
     Route: 048
     Dates: start: 20110928
  9. RISPERIDONE. [Concomitant]
     Active Substance: RISPERIDONE
     Dosage: QD
     Route: 048
  10. OXYBUTYNIN [Concomitant]
     Active Substance: OXYBUTYNIN
     Route: 048
  11. VISMODEGIB [Suspect]
     Active Substance: VISMODEGIB
     Route: 048
     Dates: start: 20111207
  12. PRAZOSIN [Concomitant]
     Active Substance: PRAZOSIN
     Route: 048
  13. AMLODIPINE [Concomitant]
     Active Substance: AMLODIPINE BESYLATE
     Dosage: QD
     Route: 048
  14. LISINOPRIL. [Concomitant]
     Active Substance: LISINOPRIL
     Dosage: QD
     Route: 048
  15. CISPLATIN. [Suspect]
     Active Substance: CISPLATIN
     Indication: SMALL CELL LUNG CANCER
     Dosage: OVER 2 HRS ON DAY 1?LAST DATE ADMINISTERED: 31/AUG/2011 AND 26-OCT-2011, DOSE DELAYED BY 7 DAYS.
     Route: 042
     Dates: start: 20110810
  16. APREPITANT. [Concomitant]
     Active Substance: APREPITANT
     Dosage: 125MG DAY 1, AND 80MG DAY 2 AND 3
     Route: 048
  17. OXYCODONE [Concomitant]
     Active Substance: OXYCODONE
     Route: 048
  18. VISMODEGIB [Suspect]
     Active Substance: VISMODEGIB
     Dosage: 15/NOV/2011
     Route: 048
     Dates: start: 20111026

REACTIONS (6)
  - Acidosis [Recovered/Resolved]
  - Dyspnoea [Unknown]
  - Hypertension [Unknown]
  - Neutrophil count decreased [Recovered/Resolved]
  - White blood cell count decreased [Recovered/Resolved]
  - Delirium [Unknown]

NARRATIVE: CASE EVENT DATE: 20110810
